FAERS Safety Report 21634738 (Version 1)
Quarter: 2022Q4

REPORT INFORMATION
  Report Type: Report from Study
  Country: US (occurrence: US)
  Receive Date: 20221123
  Receipt Date: 20221123
  Transmission Date: 20230112
  Serious: No
  Sender: FDA-Public Use
  Company Number: US-ABBVIE-22K-163-4499154-00

PATIENT
  Sex: Female

DRUGS (1)
  1. VENCLEXTA [Suspect]
     Active Substance: VENETOCLAX
     Indication: Acute myeloid leukaemia
     Dosage: TAKE 2 TABLET(S) BY MOUTH DAILY FOR 14 DAYS ON, THEN 14 DAYS OFF?100 MILLIGRAM
     Route: 048

REACTIONS (1)
  - Off label use [Unknown]
